FAERS Safety Report 9750852 (Version 2)
Quarter: 2013Q4

REPORT INFORMATION
  Report Type: Spontaneous
  Country: US (occurrence: US)
  Receive Date: 20131212
  Receipt Date: 20131227
  Transmission Date: 20140711
  Serious: No
  Sender: FDA-Public Use
  Company Number: US-BAXTER-2013BAX047832

PATIENT
  Age: 72 Year
  Sex: Male
  Weight: 100 kg

DRUGS (4)
  1. GAMMAGARD S/D [Suspect]
     Indication: IMMUNODEFICIENCY COMMON VARIABLE
     Route: 042
     Dates: start: 20131122
  2. GAMMAGARD LIQUID [Suspect]
     Indication: PRODUCT USED FOR UNKNOWN INDICATION
     Route: 065
  3. CLONAZEPAM [Concomitant]
     Indication: POOR QUALITY SLEEP
     Route: 048
  4. SUBUTEX [Concomitant]
     Indication: PAIN
     Route: 065

REACTIONS (8)
  - Oropharyngeal pain [Not Recovered/Not Resolved]
  - Dry mouth [Not Recovered/Not Resolved]
  - Malaise [Not Recovered/Not Resolved]
  - Myalgia [Not Recovered/Not Resolved]
  - Pain [Unknown]
  - Asthenia [Unknown]
  - Discomfort [Unknown]
  - Fatigue [Unknown]
